FAERS Safety Report 23534558 (Version 1)
Quarter: 2024Q1

REPORT INFORMATION
  Report Type: Spontaneous
  Country: CH (occurrence: CH)
  Receive Date: 20240217
  Receipt Date: 20240217
  Transmission Date: 20240409
  Serious: Yes (Other)
  Sender: FDA-Public Use
  Company Number: CH-AMGEN-CHESP2024028558

PATIENT
  Age: 76 Year
  Sex: Male
  Weight: 69 kg

DRUGS (5)
  1. REPATHA [Suspect]
     Active Substance: EVOLOCUMAB
     Indication: Dyslipidaemia
     Dosage: 140 MG 1X/15D
     Route: 058
     Dates: start: 20230930, end: 20231030
  2. VALSARTAN [Suspect]
     Active Substance: VALSARTAN
     Indication: Hypertension
     Dosage: 80 MILLIGRAM, QD
     Route: 048
  3. FEBUXOSTAT [Suspect]
     Active Substance: FEBUXOSTAT
     Indication: Hyperuricaemia
     Dosage: 40 MILLIGRAM, QD
     Route: 048
  4. LERCANIDIPINE [Suspect]
     Active Substance: LERCANIDIPINE
     Indication: Hypertension
     Dosage: 10 MILLIGRAM, QD
     Route: 048
  5. CARDIAX [Concomitant]
     Indication: Cardiovascular event prophylaxis
     Dosage: 100 MILLIGRAM
     Route: 048

REACTIONS (2)
  - Polymyalgia rheumatica [Recovered/Resolved]
  - Myalgia [Recovered/Resolved]

NARRATIVE: CASE EVENT DATE: 20231001
